FAERS Safety Report 10362482 (Version 4)
Quarter: 2014Q3

REPORT INFORMATION
  Report Type: Spontaneous
  Country: JP (occurrence: JP)
  Receive Date: 20140805
  Receipt Date: 20140905
  Transmission Date: 20150326
  Serious: Yes (Life-Threatening, Other)
  Sender: FDA-Public Use
  Company Number: PHHY2014JP089275

PATIENT
  Age: 78 Year
  Sex: Female
  Weight: 46 kg

DRUGS (8)
  1. ALLOPURINOL. [Suspect]
     Active Substance: ALLOPURINOL
     Indication: HYPERURICAEMIA
     Dosage: 200 MG, DAILY
     Route: 048
     Dates: start: 20140626, end: 20140702
  2. JANUVIA [Concomitant]
     Active Substance: SITAGLIPTIN PHOSPHATE
     Indication: DIABETES MELLITUS
     Dosage: 25 MG, DAILY
     Route: 048
     Dates: start: 2014
  3. MYSLEE [Concomitant]
     Active Substance: ZOLPIDEM TARTRATE
     Indication: INSOMNIA
     Dosage: 10 MG, DAILY
     Route: 048
     Dates: start: 2012
  4. MECOBALAMIN [Concomitant]
     Active Substance: METHYLCOBALAMIN
     Indication: NEUROPATHY PERIPHERAL
     Dosage: 1500 MG, DAILY
     Route: 048
     Dates: start: 2012
  5. OLMETEC [Concomitant]
     Active Substance: OLMESARTAN MEDOXOMIL
     Indication: HYPERTENSION
     Dosage: 20 MG, DAILY
     Route: 048
  6. TROXSIN [Concomitant]
     Indication: GASTRITIS
     Dosage: 100 MG, DAILY
     Route: 048
     Dates: start: 2012
  7. ATENERATE [Concomitant]
     Indication: HYPERTENSION
     Dosage: 40 MG, DAILY
     Route: 048
     Dates: start: 2012
  8. TASIGNA [Suspect]
     Active Substance: NILOTINIB
     Indication: CHRONIC MYELOID LEUKAEMIA
     Dosage: 600 MG, QD
     Route: 048
     Dates: start: 20140626, end: 20140705

REACTIONS (6)
  - Pneumonia [Recovered/Resolved]
  - Anaemia [Recovering/Resolving]
  - Malaise [Unknown]
  - Blood glucose increased [Recovered/Resolved]
  - Wheezing [Unknown]
  - Renal failure acute [Recovered/Resolved]

NARRATIVE: CASE EVENT DATE: 20140628
